FAERS Safety Report 14149567 (Version 1)
Quarter: 2017Q4

REPORT INFORMATION
  Report Type: Other
  Country: None (occurrence: US)
  Receive Date: 20171101
  Receipt Date: 20171101
  Transmission Date: 20180321
  Serious: Yes (Other)
  Sender: FDA-Public Use
  Company Number: US-GUTHY-RENKER, LLC-2032959

PATIENT
  Age: 57 Year
  Sex: Female

DRUGS (4)
  1. MEANINGFUL BEAUTY CINDY CRAWFORD SKIN BRIGHTENING DECOLLETE AND NECK TREATMENT SPF 15 [Suspect]
     Active Substance: AVOBENZONE\OCTINOXATE\OCTISALATE\OXYBENZONE
     Indication: PHOTOSENSITIVITY REACTION
     Route: 061
     Dates: start: 20171015, end: 20171016
  2. MEANINGFUL BEAUTY DARK SPOT CORRECTING TREATMENT [Suspect]
     Active Substance: HYDROQUINONE
     Route: 061
     Dates: start: 20171015, end: 20171016
  3. MEANINGFUL BEAUTY CINDY CRAWFORD ANTIOXIDANT SPF 20 UVA/UVB [Suspect]
     Active Substance: AVOBENZONE\OCTINOXATE\OCTISALATE\OXYBENZONE
     Route: 061
     Dates: start: 20171015, end: 20171016
  4. UNDISCLOSED MEDS FOR DEPRESSION,CHEMICAL IMBALANCE,PSYCHIATRIC ILLNESS [Concomitant]

REACTIONS (3)
  - Dyspnoea [None]
  - Erythema [None]
  - Application site pain [Recovering/Resolving]

NARRATIVE: CASE EVENT DATE: 20171016
